FAERS Safety Report 14804994 (Version 1)
Quarter: 2018Q2

REPORT INFORMATION
  Report Type: Spontaneous
  Country: US (occurrence: US)
  Receive Date: 20180425
  Receipt Date: 20180425
  Transmission Date: 20180711
  Serious: Yes (Death)
  Sender: FDA-Public Use
  Company Number: US-MYLANLABS-2018M1025656

PATIENT
  Age: 59 Year
  Sex: Male

DRUGS (2)
  1. PACLITAXEL. [Suspect]
     Active Substance: PACLITAXEL
     Indication: METASTATIC MALIGNANT MELANOMA
     Route: 065
  2. CARBOPLATIN. [Suspect]
     Active Substance: CARBOPLATIN
     Indication: METASTATIC MALIGNANT MELANOMA
     Route: 065

REACTIONS (3)
  - Condition aggravated [Fatal]
  - Tumour lysis syndrome [Fatal]
  - Multiple organ dysfunction syndrome [Fatal]
